FAERS Safety Report 4763811-9 (Version None)
Quarter: 2005Q3

REPORT INFORMATION
  Report Type: 
  Country: None (occurrence: None)
  Receive Date: 20050901
  Receipt Date: 20050120
  Transmission Date: 20060218
  Serious: Yes (Hospitalization)
  Sender: FDA-Public Use
  Company Number: 141146USA

PATIENT
  Age: 64 Year
  Sex: Male
  Weight: 89.3586 kg

DRUGS (1)
  1. CARBIDOPA AND LEVODOPA [Suspect]
     Indication: RESTLESS LEGS SYNDROME
     Dates: start: 20041207, end: 20041213

REACTIONS (6)
  - BLOOD PRESSURE INCREASED [None]
  - CHEST PAIN [None]
  - ELECTROCARDIOGRAM ABNORMAL [None]
  - HYPERSENSITIVITY [None]
  - MUSCLE TWITCHING [None]
  - TREMOR [None]
